FAERS Safety Report 10170917 (Version 1)
Quarter: 2014Q2

REPORT INFORMATION
  Report Type: Spontaneous
  Country: US (occurrence: None)
  Receive Date: 20140512
  Receipt Date: 20140512
  Transmission Date: 20141212
  Serious: Yes (Other)
  Sender: FDA-Public Use
  Company Number: 2014P1003813

PATIENT
  Age: 31 Year
  Sex: Male

DRUGS (2)
  1. DOXYCYCLINE HYCLATE CAPSULES [Suspect]
     Route: 048
     Dates: start: 2009
  2. MEFLOQUINE [Suspect]

REACTIONS (5)
  - Nightmare [None]
  - Post-traumatic stress disorder [None]
  - Poisoning [None]
  - Skin exfoliation [None]
  - Treatment noncompliance [None]
